FAERS Safety Report 14639306 (Version 1)
Quarter: 2018Q1

REPORT INFORMATION
  Report Type: Spontaneous
  Country: FR (occurrence: FR)
  Receive Date: 20180315
  Receipt Date: 20180315
  Transmission Date: 20180509
  Serious: Yes (Other)
  Sender: FDA-Public Use
  Company Number: FR-SUN PHARMACEUTICAL INDUSTRIES LTD-2018RR-166373

PATIENT
  Age: 79 Year
  Sex: Male

DRUGS (5)
  1. CIPROFLOXACIN. [Suspect]
     Active Substance: CIPROFLOXACIN
     Indication: BORDETELLA INFECTION
     Dosage: UNK ()
     Route: 065
     Dates: start: 2014
  2. RITUXIMAB. [Concomitant]
     Active Substance: RITUXIMAB
     Indication: WALDENSTROM^S MACROGLOBULINAEMIA
     Dosage: UNK ()
     Route: 065
  3. IMIPENEM AND CILASTATIN [Suspect]
     Active Substance: CILASTATIN SODIUM\IMIPENEM
     Indication: BORDETELLA INFECTION
     Dosage: UNK ()
     Route: 065
     Dates: start: 2014
  4. AMIKACIN [Suspect]
     Active Substance: AMIKACIN
     Indication: BORDETELLA INFECTION
     Dosage: UNK ()
     Route: 065
     Dates: start: 2014
  5. SULFAMETHOXAZOLE,TRIMETHOPRIM [Suspect]
     Active Substance: SULFAMETHOXAZOLE\TRIMETHOPRIM
     Indication: BORDETELLA INFECTION
     Dosage: UNK ()
     Route: 065

REACTIONS (1)
  - Drug ineffective [Unknown]
